FAERS Safety Report 6639213-7 (Version None)
Quarter: 2010Q1

REPORT INFORMATION
  Report Type: 
  Country: None (occurrence: None)
  Receive Date: 20100317
  Receipt Date: 20100312
  Transmission Date: 20100710
  Serious: Yes (Hospitalization)
  Sender: FDA-Public Use
  Company Number: US-GILEAD-2010-0026457

PATIENT
  Sex: Male

DRUGS (9)
  1. LETAIRIS [Suspect]
     Indication: PULMONARY ARTERIAL HYPERTENSION
     Dates: start: 20080709
  2. LETAIRIS [Suspect]
     Dates: start: 20080531
  3. LASIX [Concomitant]
  4. ALDACTONE [Concomitant]
  5. ASPIRIN [Concomitant]
  6. PREDNISOLONE [Concomitant]
  7. MULTI-VITAMINS [Concomitant]
  8. CALCIUM [Concomitant]
  9. VITAMIN D [Concomitant]

REACTIONS (1)
  - PNEUMONIA [None]
